FAERS Safety Report 26137786 (Version 1)
Quarter: 2025Q4

REPORT INFORMATION
  Report Type: Spontaneous
  Country: EG (occurrence: EG)
  Receive Date: 20251209
  Receipt Date: 20251209
  Transmission Date: 20260117
  Serious: Yes (Hospitalization, Other)
  Sender: BAXTER
  Company Number: EG-BAXTER-2025BAX025188

PATIENT
  Age: 2 Year
  Sex: Female
  Weight: 10 kg

DRUGS (3)
  1. CYCLOPHOSPHAMIDE [Suspect]
     Active Substance: CYCLOPHOSPHAMIDE
     Indication: Nephroblastoma
     Dosage: 1 G, EVERY 3 WK
     Route: 042
     Dates: start: 20250803, end: 20250803
  2. CARBOPLATIN [Suspect]
     Active Substance: CARBOPLATIN
     Indication: Nephroblastoma
     Dosage: 450 MG, EVERY 3 WK
     Route: 042
     Dates: start: 20250803, end: 20250803
  3. ETOPOSIDE [Suspect]
     Active Substance: ETOPOSIDE
     Indication: Nephroblastoma
     Dosage: 450 MG, EVERY 3 WK
     Route: 042
     Dates: start: 20250803, end: 20250803

REACTIONS (2)
  - Altered state of consciousness [Recovering/Resolving]
  - Seizure [Recovering/Resolving]

NARRATIVE: CASE EVENT DATE: 20250803
